FAERS Safety Report 6382064-1 (Version None)
Quarter: 2009Q3

REPORT INFORMATION
  Report Type: 
  Country: None (occurrence: None)
  Receive Date: 20090930
  Receipt Date: 20090918
  Transmission Date: 20100115
  Serious: Yes (Other)
  Sender: FDA-Public Use
  Company Number: PHEH2009US11736

PATIENT
  Sex: Male

DRUGS (1)
  1. EXJADE [Suspect]
     Indication: ACUTE LYMPHOCYTIC LEUKAEMIA (IN REMISSION)
     Dosage: 1500 MG, QD
     Route: 048
     Dates: start: 20090831, end: 20090916

REACTIONS (6)
  - DEAFNESS [None]
  - EAR PAIN [None]
  - HEADACHE [None]
  - TINNITUS [None]
  - VISION BLURRED [None]
  - VISUAL IMPAIRMENT [None]
